FAERS Safety Report 24302331 (Version 1)
Quarter: 2024Q3

REPORT INFORMATION
  Report Type: Spontaneous
  Country: FR (occurrence: FR)
  Receive Date: 20240910
  Receipt Date: 20240910
  Transmission Date: 20241017
  Serious: Yes (Hospitalization)
  Sender: RANBAXY
  Company Number: FR-AFSSAPS-AN2024000831

PATIENT
  Age: 86 Year
  Sex: Male
  Weight: 60 kg

DRUGS (8)
  1. ERTAPENEM [Suspect]
     Active Substance: ERTAPENEM
     Indication: Infection
     Dosage: 500 MILLIGRAM, DAILY
     Route: 040
     Dates: start: 20240527, end: 20240605
  2. PROPRANOLOL [Suspect]
     Active Substance: PROPRANOLOL HYDROCHLORIDE
     Indication: Cardiovascular event prophylaxis
     Dosage: UNK
     Route: 048
     Dates: start: 20240531
  3. INNOHEP [Suspect]
     Active Substance: TINZAPARIN SODIUM
     Indication: Superficial vein thrombosis
     Dosage: 11000 INTERNATIONAL UNIT, DAILY
     Route: 058
     Dates: start: 20240523, end: 20240605
  4. AMIKACIN SULFATE [Suspect]
     Active Substance: AMIKACIN SULFATE
     Indication: Infection
     Dosage: 500 MILLIGRAM, IN TOTAL
     Route: 040
     Dates: start: 20240602, end: 20240602
  5. AMIKACIN SULFATE [Suspect]
     Active Substance: AMIKACIN SULFATE
     Dosage: 500 MILLIGRAM, IN TOTAL
     Route: 065
     Dates: start: 20240606, end: 20240606
  6. AMIKACIN SULFATE [Suspect]
     Active Substance: AMIKACIN SULFATE
     Dosage: 950 MILLIGRAM, IN TOTAL
     Route: 065
     Dates: start: 20240508, end: 20240508
  7. OXAZEPAM [Suspect]
     Active Substance: OXAZEPAM
     Indication: Anxiety
     Dosage: 30 MILLIGRAM, DAILY
     Route: 048
     Dates: start: 20240606, end: 20240612
  8. OXAZEPAM [Suspect]
     Active Substance: OXAZEPAM
     Route: 048
     Dates: start: 20240525, end: 20240605

REACTIONS (1)
  - Confusional state [Recovering/Resolving]

NARRATIVE: CASE EVENT DATE: 20240605
